FAERS Safety Report 16627424 (Version 6)
Quarter: 2023Q4

REPORT INFORMATION
  Report Type: Spontaneous
  Country: US (occurrence: US)
  Receive Date: 20190724
  Receipt Date: 20231204
  Transmission Date: 20240109
  Serious: Yes (Death, Other)
  Sender: FDA-Public Use
  Company Number: US-PFIZER INC-2019314050

PATIENT
  Age: 57 Year
  Sex: Female

DRUGS (1)
  1. XELJANZ XR [Suspect]
     Active Substance: TOFACITINIB CITRATE
     Indication: Rheumatoid arthritis
     Dosage: TAKE 1 TABLET BY MOUTH EVERY DAY AS DIRECTED BY PHYSICIAN FOR 30 DAYS
     Route: 048

REACTIONS (7)
  - Death [Fatal]
  - Lung neoplasm malignant [Unknown]
  - Urinary tract infection [Recovered/Resolved]
  - Malaise [Unknown]
  - Diarrhoea infectious [Unknown]
  - Blood magnesium decreased [Unknown]
  - Blood potassium decreased [Unknown]

NARRATIVE: CASE EVENT DATE: 20190601
